FAERS Safety Report 12880339 (Version 1)
Quarter: 2016Q4

REPORT INFORMATION
  Report Type: Spontaneous
  Country: US (occurrence: US)
  Receive Date: 20161024
  Receipt Date: 20161024
  Transmission Date: 20170207
  Serious: No
  Sender: FDA-Public Use
  Company Number: None

PATIENT
  Age: 36 Year
  Sex: Female
  Weight: 72 kg

DRUGS (4)
  1. COQ10 [Concomitant]
     Active Substance: UBIDECARENONE
  2. PRENATAL VITAMINS [Concomitant]
     Active Substance: VITAMINS
  3. CRINONE [Suspect]
     Active Substance: PROGESTERONE
     Indication: IN VITRO FERTILISATION
     Dosage: ?          QUANTITY:1 SUPPOSITORY(IES);?
     Route: 067
     Dates: start: 20161017, end: 20161024
  4. PROGESTERONE IN OIL 50MG/ML WEST-WARD PHARMACEUTICALS [Concomitant]
     Active Substance: PROGESTERONE

REACTIONS (3)
  - Urinary incontinence [None]
  - Nocturia [None]
  - Vaginal discharge [None]

NARRATIVE: CASE EVENT DATE: 20161022
